FAERS Safety Report 4888584-0 (Version None)
Quarter: 2005Q4

REPORT INFORMATION
  Report Type: 
  Country: None (occurrence: None)
  Receive Date: 20051215
  Receipt Date: 20050729
  Transmission Date: 20060501
  Serious: Yes (Other)
  Sender: FDA-Public Use
  Company Number: 2005110081

PATIENT
  Sex: Male

DRUGS (2)
  1. BEXTRA [Suspect]
     Indication: BLEPHARITIS
     Dates: start: 20040301
  2. BEXTRA [Suspect]
     Indication: EYE PAIN
     Dates: start: 20040301

REACTIONS (1)
  - RENAL FAILURE ACUTE [None]
